FAERS Safety Report 14402090 (Version 1)
Quarter: 2018Q1

REPORT INFORMATION
  Report Type: Spontaneous
  Country: US (occurrence: US)
  Receive Date: 20180117
  Receipt Date: 20180117
  Transmission Date: 20180509
  Serious: No
  Sender: FDA-Public Use
  Company Number: US-MISSION PHARMACAL COMPANY-2040195

PATIENT
  Age: 47 Year
  Sex: Female

DRUGS (2)
  1. THIOLA [Suspect]
     Active Substance: TIOPRONIN
     Indication: PROPHYLAXIS
     Route: 065
     Dates: start: 20171208
  2. THIOLA [Suspect]
     Active Substance: TIOPRONIN
     Indication: CALCULUS URINARY
     Route: 065
     Dates: start: 20171208

REACTIONS (3)
  - Weight decreased [Unknown]
  - Frequent bowel movements [Unknown]
  - Dry skin [Unknown]
